FAERS Safety Report 23862236 (Version 1)
Quarter: 2024Q2

REPORT INFORMATION
  Report Type: Report from Study
  Country: US (occurrence: None)
  Receive Date: 20240516
  Receipt Date: 20240516
  Transmission Date: 20240716
  Serious: Yes (Other)
  Sender: FDA-Public Use
  Company Number: 2024A109545

PATIENT
  Sex: Female

DRUGS (1)
  1. LYNPARZA [Suspect]
     Active Substance: OLAPARIB
     Indication: Breast cancer female
     Route: 048

REACTIONS (6)
  - Full blood count decreased [Recovering/Resolving]
  - Haemoglobin decreased [Recovering/Resolving]
  - Fatigue [Recovering/Resolving]
  - Dyspnoea [Recovering/Resolving]
  - Pallor [Recovering/Resolving]
  - Brain fog [Recovering/Resolving]
